FAERS Safety Report 6802180-7 (Version None)
Quarter: 2010Q2

REPORT INFORMATION
  Report Type: 
  Country: None (occurrence: None)
  Receive Date: 20100629
  Receipt Date: 20080527
  Transmission Date: 20101027
  Serious: Yes (Hospitalization, Other)
  Sender: FDA-Public Use
  Company Number: US-PFIZER INC-2005122925

PATIENT
  Sex: Male
  Weight: 102 kg

DRUGS (2)
  1. BEXTRA [Suspect]
     Indication: ILL-DEFINED DISORDER
     Route: 048
     Dates: start: 20040304, end: 20041201
  2. BEXTRA [Suspect]
     Indication: GOUT

REACTIONS (1)
  - MYOCARDIAL INFARCTION [None]
